FAERS Safety Report 8103120-3 (Version None)
Quarter: 2011Q4

REPORT INFORMATION
  Report Type: 
  Country: None (occurrence: None)
  Receive Date: 20111222
  Receipt Date: 20110920
  Transmission Date: 20120403
  Serious: Yes (Hospitalization)
  Sender: FDA-Public Use
  Company Number: UTC-010436

PATIENT
  Age: 60 Year
  Sex: Female
  Weight: 32.27 kg

DRUGS (4)
  1. TYVASO [Suspect]
     Indication: COR PULMONALE CHRONIC
     Dosage: 72  MCG (18 MCG, 4 IN 1 D), INHALATION
     Route: 055
     Dates: start: 20110825
  2. DIURETICS (DIURETICS) [Concomitant]
  3. LETAIRIS [Concomitant]
  4. ADCIRCA [Concomitant]

REACTIONS (1)
  - FEEDING TUBE COMPLICATION [None]
